FAERS Safety Report 21854879 (Version 1)
Quarter: 2023Q1

REPORT INFORMATION
  Report Type: Spontaneous
  Country: US (occurrence: None)
  Receive Date: 20230112
  Receipt Date: 20230112
  Transmission Date: 20230417
  Serious: Yes (Death, Hospitalization)
  Sender: FDA-Public Use
  Company Number: None

PATIENT
  Age: 54 Year
  Sex: Male

DRUGS (2)
  1. APIXABAN [Suspect]
     Active Substance: APIXABAN
     Indication: Pulmonary embolism
     Dosage: 5 MG BID?
     Dates: start: 20210309, end: 20220801
  2. APIXABAN [Suspect]
     Active Substance: APIXABAN
     Indication: Deep vein thrombosis

REACTIONS (1)
  - Haemorrhage intracranial [None]

NARRATIVE: CASE EVENT DATE: 20220801
